FAERS Safety Report 6143211-X (Version None)
Quarter: 2009Q2

REPORT INFORMATION
  Report Type: 
  Country: None (occurrence: None)
  Receive Date: 20090403
  Receipt Date: 20090401
  Transmission Date: 20091009
  Serious: Yes (Hospitalization)
  Sender: FDA-Public Use
  Company Number: US-BRISTOL-MYERS SQUIBB COMPANY-14570352

PATIENT
  Age: 57 Year
  Sex: Female
  Weight: 70 kg

DRUGS (3)
  1. IXEMPRA KIT [Suspect]
     Indication: NON-SMALL CELL LUNG CANCER
     Dosage: TOTAL NO OF COURSES TO DATE = 1.
     Dates: start: 20090306, end: 20090306
  2. CARBOPLATIN [Suspect]
     Indication: NON-SMALL CELL LUNG CANCER
     Dosage: TOTAL NO OF COURSES TO DATE = 1.
     Dates: start: 20090306, end: 20090306
  3. AVASTIN [Suspect]
     Indication: NON-SMALL CELL LUNG CANCER
     Dosage: TOTAL NO OF COURSES TO DATE = 1.
     Dates: start: 20090306, end: 20090306

REACTIONS (2)
  - ATRIAL FIBRILLATION [None]
  - LEFT VENTRICULAR DYSFUNCTION [None]
